FAERS Safety Report 9607895 (Version 3)
Quarter: 2014Q4

REPORT INFORMATION
  Report Type: Spontaneous
  Country: US (occurrence: US)
  Receive Date: 20131009
  Receipt Date: 20141029
  Transmission Date: 20150529
  Serious: Yes (Hospitalization, Other)
  Sender: FDA-Public Use
  Company Number: US-ASTRAZENECA-2013SE73310

PATIENT
  Age: 70 Year
  Sex: Female
  Weight: 74.8 kg

DRUGS (21)
  1. RHINOCORT AQUA [Suspect]
     Active Substance: BUDESONIDE
     Indication: SINUSITIS
     Dosage: 2 PUFFS EACH NOSTRIL DAILY
     Route: 045
     Dates: start: 2005, end: 201301
  2. CALCITONIN [Concomitant]
     Active Substance: CALCITONIN
     Indication: BONE LOSS
     Route: 045
     Dates: start: 201312
  3. RHINOCORT AQUA [Suspect]
     Active Substance: BUDESONIDE
     Indication: CHRONIC SINUSITIS
     Dosage: PRN
     Route: 045
  4. RHINOCORT AQUA [Suspect]
     Active Substance: BUDESONIDE
     Indication: SINUSITIS
     Dosage: PRN
     Route: 045
  5. CLOPIDOGREL [Concomitant]
     Active Substance: CLOPIDOGREL BISULFATE
     Indication: CAROTID ARTERY OCCLUSION
     Route: 048
     Dates: start: 2009
  6. CALCIUM [Concomitant]
     Active Substance: CALCIUM
     Dosage: 1000 BID
     Route: 048
  7. MVI [Concomitant]
     Active Substance: VITAMINS
     Dosage: DAILY
     Route: 048
  8. RHINOCORT AQUA [Suspect]
     Active Substance: BUDESONIDE
     Indication: RHINITIS
     Route: 045
     Dates: start: 1995, end: 2012
  9. RHINOCORT AQUA [Suspect]
     Active Substance: BUDESONIDE
     Indication: CHRONIC SINUSITIS
     Route: 045
     Dates: start: 1995, end: 2012
  10. RHINOCORT AQUA [Suspect]
     Active Substance: BUDESONIDE
     Indication: RHINITIS
     Dosage: 2 PUFFS EACH NOSTRIL DAILY
     Route: 045
     Dates: start: 2005, end: 201301
  11. RHINOCORT AQUA [Suspect]
     Active Substance: BUDESONIDE
     Indication: RHINITIS
     Dosage: PRN
     Route: 045
  12. BABY ASA [Concomitant]
     Active Substance: ASPIRIN
     Indication: BLOOD DISORDER
     Route: 048
     Dates: start: 2009
  13. RHINOCORT AQUA [Suspect]
     Active Substance: BUDESONIDE
     Indication: CHRONIC SINUSITIS
     Dosage: 2 PUFFS EACH NOSTRIL DAILY
     Route: 045
     Dates: start: 2005, end: 201301
  14. PROBIOTIC [Concomitant]
     Active Substance: PROBIOTICS NOS
     Indication: DIVERTICULUM
     Dosage: DAILY
     Route: 048
  15. TYLENOL [Concomitant]
     Active Substance: ACETAMINOPHEN
     Indication: BACK PAIN
     Dosage: AT NIGHT
     Route: 048
  16. ALENDRONATE [Concomitant]
     Active Substance: ALENDRONATE SODIUM
     Indication: BONE LOSS
     Route: 048
     Dates: start: 201312
  17. SIMVASTATIN. [Concomitant]
     Active Substance: SIMVASTATIN
     Indication: BLOOD CHOLESTEROL ABNORMAL
     Route: 048
     Dates: start: 1994
  18. RHINOCORT AQUA [Suspect]
     Active Substance: BUDESONIDE
     Indication: SINUSITIS
     Route: 045
     Dates: start: 1995, end: 2012
  19. LOZARTAN/HCT [Concomitant]
     Indication: BLOOD PRESSURE ABNORMAL
     Dosage: 80 DAILY
     Route: 048
     Dates: start: 1994
  20. FLUTICASONE PROPRIANATE [Concomitant]
     Dates: start: 2012
  21. CLOPIDOGREL [Concomitant]
     Active Substance: CLOPIDOGREL BISULFATE
     Indication: BLOOD DISORDER
     Route: 048
     Dates: start: 2009

REACTIONS (18)
  - Labyrinthitis [Recovered/Resolved]
  - Blood cholesterol increased [Unknown]
  - Fall [Recovered/Resolved]
  - Blood pressure increased [Unknown]
  - Localised infection [Recovering/Resolving]
  - Impaired healing [Not Recovered/Not Resolved]
  - Diverticulum [Not Recovered/Not Resolved]
  - Tympanic membrane perforation [Recovered/Resolved]
  - Sinusitis [Recovered/Resolved with Sequelae]
  - Arterial occlusive disease [Recovering/Resolving]
  - Lumbar vertebral fracture [Not Recovered/Not Resolved]
  - Ear infection [Not Recovered/Not Resolved]
  - Otorrhoea [Not Recovered/Not Resolved]
  - Osteoporosis [Not Recovered/Not Resolved]
  - Body height decreased [Not Recovered/Not Resolved]
  - Nasopharyngitis [Recovered/Resolved]
  - Ear pain [Recovered/Resolved]
  - Intentional product misuse [Unknown]

NARRATIVE: CASE EVENT DATE: 2005
